FAERS Safety Report 8533649-5 (Version None)
Quarter: 2012Q3

REPORT INFORMATION
  Report Type: 
  Country: None (occurrence: None)
  Receive Date: 20120724
  Receipt Date: 20120713
  Transmission Date: 20120928
  Serious: Yes (Hospitalization)
  Sender: FDA-Public Use
  Company Number: US-SANOFI-AVENTIS-2012SA050361

PATIENT
  Sex: Female

DRUGS (2)
  1. LANTUS [Suspect]
     Indication: TYPE 1 DIABETES MELLITUS
     Dosage: TOOK 5-6 UNITS WITH EVERY MEAL.
     Route: 058
     Dates: start: 20110101, end: 20110101
  2. REGULAR INSULIN [Suspect]
     Route: 065
     Dates: start: 20110101

REACTIONS (1)
  - SMALL INTESTINAL OBSTRUCTION [None]
